FAERS Safety Report 6329518-1 (Version None)
Quarter: 2009Q3

REPORT INFORMATION
  Report Type: 
  Country: None (occurrence: None)
  Receive Date: 20090826
  Receipt Date: 20090824
  Transmission Date: 20100115
  Serious: Yes (Hospitalization, Other)
  Sender: FDA-Public Use
  Company Number: US-RB-019705-09

PATIENT
  Sex: Female

DRUGS (1)
  1. SUBOXONE [Suspect]
     Route: 060
     Dates: start: 20080101, end: 20090822

REACTIONS (3)
  - COMA [None]
  - ROAD TRAFFIC ACCIDENT [None]
  - TRAUMATIC BRAIN INJURY [None]
